FAERS Safety Report 21097072 (Version 4)
Quarter: 2024Q2

REPORT INFORMATION
  Report Type: Report from Study
  Country: US (occurrence: US)
  Receive Date: 20220719
  Receipt Date: 20240610
  Transmission Date: 20240716
  Serious: Yes (Hospitalization, Other)
  Sender: FDA-Public Use
  Company Number: US-ABBVIE-22K-163-4470829-00

PATIENT
  Age: 79 Year
  Sex: Male

DRUGS (22)
  1. DUOPA [Suspect]
     Active Substance: CARBIDOPA\LEVODOPA
     Indication: Product used for unknown indication
     Dosage: DRUG STOP DATE: 2020
     Route: 050
     Dates: start: 20200214
  2. DUOPA [Suspect]
     Active Substance: CARBIDOPA\LEVODOPA
     Route: 050
     Dates: start: 20200625
  3. PNEUMOVAX 23 [Concomitant]
     Active Substance: PNEUMOCOCCAL VACCINE, POLYVALENT 23
     Indication: Product used for unknown indication
     Route: 030
  4. SERTRALINE [Concomitant]
     Active Substance: SERTRALINE HYDROCHLORIDE
     Indication: Product used for unknown indication
     Route: 048
  5. ZOSTAVAX [Concomitant]
     Active Substance: VARICELLA-ZOSTER VIRUS STRAIN OKA/MERCK LIVE ANTIGEN
     Indication: Product used for unknown indication
     Dosage: 19400 UNIT
  6. CORICIDIN HBP COUGH AND COLD [Concomitant]
     Active Substance: CHLORPHENIRAMINE MALEATE\DEXTROMETHORPHAN HYDROBROMIDE
     Indication: Product used for unknown indication
     Route: 048
  7. XADAGO [Concomitant]
     Active Substance: SAFINAMIDE MESYLATE
     Indication: Product used for unknown indication
     Route: 048
  8. RIVASTIGMINE [Concomitant]
     Active Substance: RIVASTIGMINE
     Indication: Product used for unknown indication
     Route: 048
  9. XYZAL [Concomitant]
     Active Substance: LEVOCETIRIZINE DIHYDROCHLORIDE
     Indication: Product used for unknown indication
     Route: 048
  10. VALSARTAN AND HYDROCHLOROTHIAZIDE [Concomitant]
     Active Substance: HYDROCHLOROTHIAZIDE\VALSARTAN
     Indication: Product used for unknown indication
     Dosage: 80MG-12.5MG
  11. CARBIDOPA\LEVODOPA [Concomitant]
     Active Substance: CARBIDOPA\LEVODOPA
     Indication: Product used for unknown indication
     Dosage: EXTENDED RELEASE
     Route: 048
  12. NORVASC [Concomitant]
     Active Substance: AMLODIPINE BESYLATE
     Indication: Product used for unknown indication
     Route: 048
  13. ASPIRIN [Concomitant]
     Active Substance: ASPIRIN
     Indication: Product used for unknown indication
     Route: 048
  14. ROPINIROLE HYDROCHLORIDE [Concomitant]
     Active Substance: ROPINIROLE HYDROCHLORIDE
     Indication: Product used for unknown indication
     Route: 048
  15. MYRBETRIQ [Concomitant]
     Active Substance: MIRABEGRON
     Indication: Product used for unknown indication
     Route: 048
  16. MIRALAX [Concomitant]
     Active Substance: POLYETHYLENE GLYCOL 3350
     Indication: Product used for unknown indication
     Route: 048
  17. VALSARTAN [Concomitant]
     Active Substance: VALSARTAN
     Indication: Product used for unknown indication
     Route: 048
  18. NUPLAZID [Concomitant]
     Active Substance: PIMAVANSERIN TARTRATE
     Indication: Product used for unknown indication
     Route: 048
  19. APOKYN [Concomitant]
     Active Substance: APOMORPHINE HYDROCHLORIDE
     Indication: Product used for unknown indication
     Route: 058
  20. SERTRALINE HYDROCHLORIDE [Concomitant]
     Active Substance: SERTRALINE HYDROCHLORIDE
     Indication: Product used for unknown indication
     Route: 048
  21. TYLENOL [Concomitant]
     Active Substance: ACETAMINOPHEN
     Indication: Product used for unknown indication
     Dosage: 500MG-25MG
  22. CORICIDIN [Concomitant]
     Indication: Product used for unknown indication
     Dosage: 4MG-30MG

REACTIONS (8)
  - Rehabilitation therapy [Unknown]
  - Fluid retention [Unknown]
  - Hypopnoea [Unknown]
  - Hospitalisation [Unknown]
  - Allergic sinusitis [Unknown]
  - Dyspnoea [Unknown]
  - Hallucination [Unknown]
  - Unevaluable event [Unknown]

NARRATIVE: CASE EVENT DATE: 20220616
